FAERS Safety Report 9082910 (Version 1)
Quarter: 2013Q1

REPORT INFORMATION
  Report Type: Report from Study
  Country: US (occurrence: US)
  Receive Date: 20130130
  Receipt Date: 20130130
  Transmission Date: 20140127
  Serious: No
  Sender: FDA-Public Use
  Company Number: US-ABBOTT-12P-163-0974652-00

PATIENT
  Age: 85 Year
  Sex: Female

DRUGS (19)
  1. HUMIRA [Suspect]
     Indication: RHEUMATOID ARTHRITIS
     Dates: start: 20120615
  2. CITALOPRAM [Concomitant]
     Indication: DEPRESSION
  3. PHENYTOIN [Concomitant]
     Indication: CONVULSION
     Dosage: 1 CAP IN THE AM 2 CAPS IN AFTERNOON
  4. SIMVASTATIN [Concomitant]
     Indication: BLOOD CHOLESTEROL
     Dosage: 20MG DAILY
  5. WARFARIN [Concomitant]
     Indication: ANTICOAGULANT THERAPY
     Dosage: 2.5MG DAILY
  6. ONDANSETRON [Concomitant]
     Indication: NAUSEA
     Dosage: AS NEEDED
  7. RANITIDINE [Concomitant]
     Indication: GASTROOESOPHAGEAL REFLUX DISEASE
     Dosage: 150MG DAILY
  8. TRICOR [Concomitant]
     Indication: BLOOD CHOLESTEROL
     Dosage: 145MG DAILY
  9. MULTAQ [Concomitant]
     Indication: ATRIAL FIBRILLATION
  10. ICAPS [Concomitant]
     Indication: MACULAR DEGENERATION
  11. ALPRAZOLAM [Concomitant]
     Indication: ANXIETY
  12. FOLIC ACID [Concomitant]
     Indication: PRODUCT USED FOR UNKNOWN INDICATION
     Dosage: 1MG DAILY
  13. MIRTAZAPINE [Concomitant]
     Indication: DEPRESSION
     Dosage: 25MG DAILY
  14. THYROXINE [Concomitant]
     Indication: THYROID DISORDER
     Dosage: 100MG DAILY
  15. NEXIUM [Concomitant]
     Indication: GASTROOESOPHAGEAL REFLUX DISEASE
     Dosage: 40MG DAILY
  16. PROBIOTIC [Concomitant]
     Indication: PRODUCT USED FOR UNKNOWN INDICATION
     Dosage: DAILY
  17. METHOTREXATE [Concomitant]
     Indication: RHEUMATOID ARTHRITIS
  18. JANUVIA [Concomitant]
     Indication: DIABETES MELLITUS
  19. GLIPIZIDE [Concomitant]
     Indication: DIABETES MELLITUS
     Dosage: AT BEDTIME

REACTIONS (2)
  - Animal bite [Recovering/Resolving]
  - Wound haemorrhage [Recovering/Resolving]
